FAERS Safety Report 19580851 (Version 1)
Quarter: 2021Q3

REPORT INFORMATION
  Report Type: Spontaneous
  Country: IT (occurrence: IT)
  Receive Date: 20210719
  Receipt Date: 20210719
  Transmission Date: 20211014
  Serious: Yes (Life-Threatening, Hospitalization)
  Sender: FDA-Public Use
  Company Number: IT-LUPIN PHARMACEUTICALS INC.-2021-12037

PATIENT
  Age: 13 Year
  Sex: Male

DRUGS (30)
  1. LIDOCAINE. [Suspect]
     Active Substance: LIDOCAINE
     Indication: PARTIAL SEIZURES
     Dosage: UNK, INTRAVENOUS INFUSION
     Route: 042
  2. CLOBAZAM. [Suspect]
     Active Substance: CLOBAZAM
     Indication: PARTIAL SEIZURES
     Dosage: UNK
     Route: 065
  3. VALPROATE [Suspect]
     Active Substance: VALPROIC ACID
     Indication: STATUS EPILEPTICUS
  4. KETAMINE [Suspect]
     Active Substance: KETAMINE
     Indication: STATUS EPILEPTICUS
  5. THIOPENTAL [Concomitant]
     Active Substance: THIOPENTAL
     Indication: STATUS EPILEPTICUS
     Dosage: 2?5 MG/KG/HOUR; INFUSION
     Route: 042
  6. ANAKINRA [Concomitant]
     Active Substance: ANAKINRA
     Indication: ENCEPHALOPATHY
     Dosage: UNK
     Route: 065
  7. LEVETIRACETAM. [Suspect]
     Active Substance: LEVETIRACETAM
     Indication: PARTIAL SEIZURES
     Dosage: UNK
     Route: 065
  8. PHENYTOIN SODIUM. [Suspect]
     Active Substance: PHENYTOIN SODIUM
     Indication: STATUS EPILEPTICUS
  9. PHENOBARBITAL. [Suspect]
     Active Substance: PHENOBARBITAL
     Indication: PARTIAL SEIZURES
  10. MIDAZOLAM. [Suspect]
     Active Substance: MIDAZOLAM
     Indication: STATUS EPILEPTICUS
     Dosage: UNK
     Route: 042
  11. PERAMPANEL [Suspect]
     Active Substance: PERAMPANEL
     Indication: STATUS EPILEPTICUS
  12. THIOPENTAL [Concomitant]
     Active Substance: THIOPENTAL
     Indication: PARTIAL SEIZURES
  13. RITUXIMAB. [Concomitant]
     Active Substance: RITUXIMAB
     Indication: ENCEPHALOPATHY
     Dosage: UNK
     Route: 065
  14. BORTEZOMIB. [Concomitant]
     Active Substance: BORTEZOMIB
     Indication: ENCEPHALOPATHY
     Dosage: UNK
     Route: 065
  15. TOPIRAMAT [Suspect]
     Active Substance: TOPIRAMATE
     Indication: STATUS EPILEPTICUS
  16. VALPROATE [Suspect]
     Active Substance: VALPROIC ACID
     Indication: PARTIAL SEIZURES
     Dosage: UNK
     Route: 065
  17. LIDOCAINE. [Suspect]
     Active Substance: LIDOCAINE
     Indication: STATUS EPILEPTICUS
  18. MIDAZOLAM. [Suspect]
     Active Substance: MIDAZOLAM
     Indication: PARTIAL SEIZURES
  19. LEVETIRACETAM. [Suspect]
     Active Substance: LEVETIRACETAM
     Indication: STATUS EPILEPTICUS
  20. TOPIRAMAT [Suspect]
     Active Substance: TOPIRAMATE
     Indication: PARTIAL SEIZURES
     Dosage: UNK
     Route: 065
  21. CARBAMAZEPINE. [Suspect]
     Active Substance: CARBAMAZEPINE
     Indication: PARTIAL SEIZURES
  22. PERAMPANEL [Suspect]
     Active Substance: PERAMPANEL
     Indication: PARTIAL SEIZURES
     Dosage: UNK
     Route: 065
  23. SIROLIMUS. [Concomitant]
     Active Substance: SIROLIMUS
     Indication: ENCEPHALOPATHY
     Dosage: UNK
     Route: 065
  24. CLOBAZAM. [Suspect]
     Active Substance: CLOBAZAM
     Indication: STATUS EPILEPTICUS
  25. LACOSAMIDE. [Suspect]
     Active Substance: LACOSAMIDE
     Indication: PARTIAL SEIZURES
     Dosage: UNK
     Route: 065
  26. LACOSAMIDE. [Suspect]
     Active Substance: LACOSAMIDE
     Indication: STATUS EPILEPTICUS
  27. PHENYTOIN SODIUM. [Suspect]
     Active Substance: PHENYTOIN SODIUM
     Indication: PARTIAL SEIZURES
     Dosage: UNK
     Route: 065
  28. PHENOBARBITAL. [Suspect]
     Active Substance: PHENOBARBITAL
     Indication: STATUS EPILEPTICUS
     Dosage: UNK
     Route: 065
  29. KETAMINE [Suspect]
     Active Substance: KETAMINE
     Indication: PARTIAL SEIZURES
     Dosage: UNK, INTRAVENOUS INFUSION
     Route: 042
  30. CARBAMAZEPINE. [Suspect]
     Active Substance: CARBAMAZEPINE
     Indication: STATUS EPILEPTICUS
     Dosage: UNK
     Route: 065

REACTIONS (1)
  - Drug ineffective [Unknown]
